FAERS Safety Report 8533146-7 (Version None)
Quarter: 2012Q2

REPORT INFORMATION
  Report Type: 
  Country: None (occurrence: None)
  Receive Date: 20120412
  Receipt Date: 20070308
  Transmission Date: 20120825
  Serious: Yes (Other)
  Sender: FDA-Public Use
  Company Number: PHEH2007US02469

PATIENT
  Age: 57 Year
  Sex: Female
  Weight: 91.6 kg

DRUGS (3)
  1. ESTALIS COMBIPATCH (ESTRADIOL, NORETHISTERONE ACETATE) TRANS-THERAPEUT [Suspect]
     Indication: HORMONE REPLACEMENT THERAPY
     Dosage: , TRANSDERMAL
     Route: 062
     Dates: start: 19990901, end: 19991101
  2. PREMARIN [Suspect]
     Indication: VULVOVAGINAL DRYNESS
     Dosage: UNK, PRN, VAGINAL
     Route: 067
     Dates: start: 19980701, end: 20020301
  3. PREMPRO [Suspect]
     Indication: HORMONE REPLACEMENT THERAPY
     Dosage: , ORAL
     Route: 048
     Dates: start: 19930101, end: 20010101

REACTIONS (16)
  - BIOPSY BREAST ABNORMAL [None]
  - FIBROCYSTIC BREAST DISEASE [None]
  - METASTATIC NEOPLASM [None]
  - DEFORMITY [None]
  - HOT FLUSH [None]
  - BREAST CANCER IN SITU [None]
  - MAMMOGRAM ABNORMAL [None]
  - MODIFIED RADICAL MASTECTOMY [None]
  - BLOOD PRESSURE ABNORMAL [None]
  - FEAR [None]
  - HYPERTENSION [None]
  - ASTHENIA [None]
  - SCAR PAIN [None]
  - OESTROGEN RECEPTOR ASSAY POSITIVE [None]
  - BREAST CANCER [None]
  - ALOPECIA [None]
